FAERS Safety Report 8128701-2 (Version None)
Quarter: 2012Q1

REPORT INFORMATION
  Report Type: 
  Country: None (occurrence: None)
  Receive Date: 20120210
  Receipt Date: 20110111
  Transmission Date: 20120608
  Serious: No
  Sender: FDA-Public Use
  Company Number: US-BRISTOL-MYERS SQUIBB COMPANY-15478324

PATIENT
  Sex: Female

DRUGS (6)
  1. VITAMINS + MINERALS [Concomitant]
  2. SINGULAIR [Concomitant]
  3. PREDNISONE TAB [Concomitant]
  4. ASPIRIN [Concomitant]
  5. ORENCIA [Suspect]
     Dosage: NO.OF INF:1,THERAPY ON 21DEC10,INTERRUPTED ON 04JAN11.
     Route: 042
  6. LIPITOR [Concomitant]

REACTIONS (3)
  - OROPHARYNGEAL PAIN [None]
  - INCREASED UPPER AIRWAY SECRETION [None]
  - FATIGUE [None]
